FAERS Safety Report 24426560 (Version 1)
Quarter: 2024Q4

REPORT INFORMATION
  Report Type: Report from Study
  Country: IE (occurrence: IE)
  Receive Date: 20241011
  Receipt Date: 20241011
  Transmission Date: 20250115
  Serious: Yes (Other)
  Sender: ALEXION PHARMACEUTICALS
  Company Number: IE-AstraZeneca-2022A370391

PATIENT
  Age: 67 Year

DRUGS (22)
  1. FASENRA [Suspect]
     Active Substance: BENRALIZUMAB
     Indication: Asthma
     Dosage: 30 MILLIGRAM, UNK, FREQUENCY: Q8WK
  2. FASENRA [Suspect]
     Active Substance: BENRALIZUMAB
     Dosage: 30 MILLIGRAM, UNK, FREQUENCY: Q8WK
  3. FASENRA [Suspect]
     Active Substance: BENRALIZUMAB
     Dosage: 30 MILLIGRAM, UNK, FREQUENCY: Q8WK
  4. FASENRA [Suspect]
     Active Substance: BENRALIZUMAB
     Dosage: 30 MILLIGRAM, UNK, FREQUENCY: Q8WK
  5. FASENRA [Suspect]
     Active Substance: BENRALIZUMAB
     Dosage: 30 MILLIGRAM, UNK, FREQUENCY: Q8WK
  6. FASENRA [Suspect]
     Active Substance: BENRALIZUMAB
     Dosage: 30 MILLIGRAM, UNK, FREQUENCY: Q8WK
  7. FASENRA [Suspect]
     Active Substance: BENRALIZUMAB
     Dosage: 30 MILLIGRAM, UNK, FREQUENCY: Q8WK
  8. FASENRA [Suspect]
     Active Substance: BENRALIZUMAB
     Dosage: 30 MILLIGRAM, UNK, FREQUENCY: Q8WK
  9. FASENRA [Suspect]
     Active Substance: BENRALIZUMAB
     Dosage: 30 MILLIGRAM, UNK, FREQUENCY: Q8WK
  10. FASENRA [Suspect]
     Active Substance: BENRALIZUMAB
     Dosage: 30 MILLIGRAM, UNK, FREQUENCY: Q8WK
  11. FASENRA [Suspect]
     Active Substance: BENRALIZUMAB
     Dosage: 30 MILLIGRAM, UNK, FREQUENCY: Q8WK
  12. FASENRA [Suspect]
     Active Substance: BENRALIZUMAB
     Dosage: 30 MILLIGRAM, UNK, FREQUENCY: Q8WK
  13. FASENRA [Suspect]
     Active Substance: BENRALIZUMAB
     Dosage: 30 MILLIGRAM, UNK, FREQUENCY: Q8WK
  14. FASENRA [Suspect]
     Active Substance: BENRALIZUMAB
     Dosage: 30 MILLIGRAM, UNK, FREQUENCY: Q8WK
  15. FASENRA [Suspect]
     Active Substance: BENRALIZUMAB
     Dosage: 30 MILLIGRAM, UNK, FREQUENCY: Q8WK
  16. FASENRA [Suspect]
     Active Substance: BENRALIZUMAB
     Dosage: 30 MILLIGRAM, UNK, FREQUENCY: Q8WK
  17. FASENRA [Suspect]
     Active Substance: BENRALIZUMAB
     Dosage: 30 MILLIGRAM, UNK, FREQUENCY: Q8WK
  18. FASENRA [Suspect]
     Active Substance: BENRALIZUMAB
     Dosage: 30 MILLIGRAM, UNK, FREQUENCY: Q8WK
  19. FASENRA [Suspect]
     Active Substance: BENRALIZUMAB
     Dosage: 30 MILLIGRAM, UNK, FREQUENCY: Q8WK
  20. FASENRA [Suspect]
     Active Substance: BENRALIZUMAB
     Dosage: 30 MILLIGRAM, UNK, FREQUENCY: Q8WK
  21. SYMBICORT [Concomitant]
     Active Substance: BUDESONIDE\FORMOTEROL FUMARATE DIHYDRATE
     Dosage: 200 MG TWO TIMES A DAY
  22. SYMBICORT [Concomitant]
     Active Substance: BUDESONIDE\FORMOTEROL FUMARATE DIHYDRATE
     Dosage: 200 MG TWO TIMES A DAY
     Route: 050

REACTIONS (5)
  - Lower respiratory tract infection [Recovering/Resolving]
  - Heart rate increased [Unknown]
  - Dyspnoea [Recovered/Resolved]
  - Drug effect less than expected [Recovered/Resolved]
  - Medication error [Unknown]
